FAERS Safety Report 11843980 (Version 1)
Quarter: 2015Q4

REPORT INFORMATION
  Report Type: Spontaneous
  Country: AU (occurrence: AU)
  Receive Date: 20151217
  Receipt Date: 20151217
  Transmission Date: 20160305
  Serious: Yes (Other)
  Sender: FDA-Public Use
  Company Number: PHHY2015AU163405

PATIENT
  Age: 35 Year
  Sex: Male

DRUGS (3)
  1. IPILIMUMAB [Suspect]
     Active Substance: IPILIMUMAB
     Indication: METASTATIC MALIGNANT MELANOMA
     Dosage: 3 MG/KG, UNK
     Route: 041
     Dates: start: 201204
  2. DABRAFENIB [Suspect]
     Active Substance: DABRAFENIB
     Indication: METASTATIC MALIGNANT MELANOMA
     Route: 065
     Dates: start: 201111
  3. IPILIMUMAB [Suspect]
     Active Substance: IPILIMUMAB
     Dosage: UNK
     Route: 041
     Dates: start: 201307

REACTIONS (9)
  - Metastases to abdominal cavity [Unknown]
  - Abdominal pain [Unknown]
  - Pyrexia [Unknown]
  - Nausea [Unknown]
  - Drug resistance [Unknown]
  - Musculoskeletal pain [Unknown]
  - Malignant neoplasm progression [Unknown]
  - Pulmonary mass [Unknown]
  - Seizure [Unknown]
